FAERS Safety Report 6430674-5 (Version None)
Quarter: 2009Q4

REPORT INFORMATION
  Report Type: 
  Country: None (occurrence: None)
  Receive Date: 20091106
  Receipt Date: 20091026
  Transmission Date: 20100525
  Serious: Yes (Other)
  Sender: FDA-Public Use
  Company Number: B0601968A

PATIENT

DRUGS (1)
  1. EUCARDIC [Suspect]
     Indication: HAEMORRHAGE PROPHYLAXIS
     Route: 048

REACTIONS (2)
  - HYPOPHAGIA [None]
  - ORAL NEOPLASM [None]
